FAERS Safety Report 5636940-5 (Version None)
Quarter: 2008Q1

REPORT INFORMATION
  Report Type: 
  Country: None (occurrence: None)
  Receive Date: 20080225
  Receipt Date: 20070112
  Transmission Date: 20080703
  Serious: No
  Sender: FDA-Public Use
  Company Number: US-BRISTOL-MYERS SQUIBB COMPANY-13641584

PATIENT
  Age: 60 Year
  Sex: Female
  Weight: 136 kg

DRUGS (3)
  1. GLUCOPHAGE [Suspect]
     Indication: DIABETES MELLITUS
     Route: 048
  2. LOTENSIN [Concomitant]
  3. LASIX [Concomitant]

REACTIONS (2)
  - CONSTIPATION [None]
  - DIARRHOEA [None]
